FAERS Safety Report 5253117-6 (Version None)
Quarter: 2007Q1

REPORT INFORMATION
  Report Type: 
  Country: None (occurrence: None)
  Receive Date: 20070301
  Receipt Date: 20070226
  Transmission Date: 20070707
  Serious: Yes (Other)
  Sender: FDA-Public Use
  Company Number: US-GLAXOSMITHKLINE-A0641217A

PATIENT
  Sex: Female

DRUGS (5)
  1. WELLBUTRIN SR [Suspect]
     Indication: DEPRESSION
     Route: 048
  2. WELLBUTRIN XL [Suspect]
     Indication: DEPRESSION
     Dosage: 300MG UNKNOWN
     Route: 048
  3. BUPROPION HYDROCHLORIDE [Suspect]
     Indication: DEPRESSION
     Dosage: 300MG UNKNOWN
     Route: 048
  4. MONOAMINE OXIDASE INHIBITOR [Concomitant]
     Indication: DEPRESSION
  5. SYNTHROID [Concomitant]
     Indication: THYROID DISORDER

REACTIONS (8)
  - DEPRESSIVE SYMPTOM [None]
  - DRUG INEFFECTIVE [None]
  - DRUG RESISTANCE [None]
  - HYPERTENSION [None]
  - LOSS OF EMPLOYMENT [None]
  - MALAISE [None]
  - PERFORMANCE STATUS DECREASED [None]
  - SUICIDAL IDEATION [None]
